FAERS Safety Report 5643772-0 (Version None)
Quarter: 2008Q1

REPORT INFORMATION
  Report Type: 
  Country: None (occurrence: None)
  Receive Date: 20080228
  Receipt Date: 20080213
  Transmission Date: 20080703
  Serious: Yes (Hospitalization, Other)
  Sender: FDA-Public Use
  Company Number: TR-BAYER-200813679GPV

PATIENT
  Age: 15 Year
  Sex: Male

DRUGS (7)
  1. FLUDARA [Suspect]
     Indication: ACUTE MYELOID LEUKAEMIA
     Route: 065
  2. IDARUBICIN HCL [Suspect]
     Indication: ACUTE MYELOID LEUKAEMIA
     Route: 065
  3. CYTARABINE [Suspect]
     Indication: ACUTE MYELOID LEUKAEMIA
     Route: 065
  4. CYTARABINE [Suspect]
     Route: 065
  5. TRETINOIN [Suspect]
     Indication: ACUTE MYELOID LEUKAEMIA
     Route: 065
  6. NEUPOGEN [Concomitant]
     Indication: CHEMOTHERAPY
  7. FLUCONAZOLE [Concomitant]
     Indication: PROPHYLAXIS
     Dosage: AS USED: 1 MG/KG
     Route: 065

REACTIONS (2)
  - FEBRILE NEUTROPENIA [None]
  - SPLENIC ABSCESS [None]
